FAERS Safety Report 8190268-0 (Version None)
Quarter: 2012Q1

REPORT INFORMATION
  Report Type: 
  Country: None (occurrence: None)
  Receive Date: 20120307
  Receipt Date: 20120227
  Transmission Date: 20120608
  Serious: Yes (Hospitalization, Other)
  Sender: FDA-Public Use
  Company Number: AU-CELGENEUS-008-50794-12012769

PATIENT
  Sex: Female
  Weight: 70.9 kg

DRUGS (19)
  1. DOMPERIDONE MALEATE [Concomitant]
     Indication: GASTROOESOPHAGEAL REFLUX DISEASE
     Dosage: 20 MILLIGRAM
     Route: 048
     Dates: start: 20050930
  2. PHENERGAN [Concomitant]
     Route: 048
     Dates: start: 20120116, end: 20120121
  3. VIDAZA [Suspect]
     Dosage: 135 MILLIGRAM
     Route: 058
  4. NAPROSYN [Concomitant]
     Indication: SCIATICA
  5. ZANTAC [Concomitant]
     Indication: GASTROOESOPHAGEAL REFLUX DISEASE
     Route: 048
     Dates: start: 20041206
  6. FUNGILIN [Concomitant]
     Route: 048
     Dates: start: 20120106
  7. PROMETHAZINE HYDROCHLORIDE [Concomitant]
     Route: 065
  8. NAPROSYN [Concomitant]
     Indication: ARTHRITIS
     Dosage: 1 GRAM
     Route: 048
     Dates: start: 20021219
  9. MOVIPREP [Concomitant]
     Indication: CONSTIPATION
     Route: 048
     Dates: start: 20101021
  10. CLARITHROMYCIN [Concomitant]
     Dosage: 500 MILLIGRAM
     Route: 048
     Dates: start: 20120109, end: 20120116
  11. CALCIUM CARBONATE [Concomitant]
     Indication: ARTHRITIS
     Dosage: 1 DOSAGE FORMS
     Route: 048
     Dates: start: 20010913
  12. BECONASE [Concomitant]
     Dosage: 50NCG/DOSE
     Route: 065
     Dates: start: 20120116, end: 20120119
  13. VIDAZA [Suspect]
     Route: 065
     Dates: start: 20111010
  14. AMOXICILLIN [Concomitant]
     Dosage: 1500 MILLIGRAM
     Route: 048
     Dates: start: 20120106, end: 20120109
  15. MICARDIS [Concomitant]
     Indication: HYPERTENSION
     Dosage: 40/12.5MG
     Route: 048
     Dates: start: 20081119
  16. BUDESONIDE [Concomitant]
     Route: 065
  17. NEXIUM [Concomitant]
     Indication: GASTROOESOPHAGEAL REFLUX DISEASE
     Dosage: 20 MILLIGRAM
     Route: 048
     Dates: start: 20020829
  18. ASMOL [Concomitant]
     Route: 055
     Dates: start: 20120116
  19. VIDAZA [Suspect]
     Route: 065
     Dates: start: 20120103, end: 20120107

REACTIONS (2)
  - PNEUMONIA [None]
  - THYMOMA [None]
